FAERS Safety Report 9107939 (Version 1)
Quarter: 2013Q1

REPORT INFORMATION
  Report Type: Report from Study
  Country: BR (occurrence: BR)
  Receive Date: 20130221
  Receipt Date: 20130221
  Transmission Date: 20140127
  Serious: Yes (Hospitalization)
  Sender: FDA-Public Use
  Company Number: BR-US-EMD SERONO, INC.-7194234

PATIENT
  Sex: Female

DRUGS (2)
  1. REBIF [Suspect]
     Indication: SECONDARY PROGRESSIVE MULTIPLE SCLEROSIS
     Dates: start: 20120628
  2. IBUPROFEN [Concomitant]
     Indication: PRODUCT USED FOR UNKNOWN INDICATION

REACTIONS (7)
  - Hypoaesthesia [Recovering/Resolving]
  - Dysarthria [Recovering/Resolving]
  - Urinary incontinence [Recovering/Resolving]
  - Sensation of heaviness [Recovering/Resolving]
  - General physical health deterioration [Recovering/Resolving]
  - Mental disorder [Recovering/Resolving]
  - Musculoskeletal stiffness [Recovering/Resolving]
